FAERS Safety Report 24685912 (Version 1)
Quarter: 2024Q4

REPORT INFORMATION
  Report Type: Spontaneous
  Country: US (occurrence: None)
  Receive Date: 20241129
  Receipt Date: 20241129
  Transmission Date: 20250114
  Serious: Yes (Hospitalization)
  Sender: Public
  Company Number: None

PATIENT
  Sex: Female

DRUGS (1)
  1. KISQALI [Suspect]
     Active Substance: RIBOCICLIB
     Indication: Breast cancer female
     Dosage: OTHER FREQUENCY : 1DAYFOR21DAYSOFA28DAYCYCLE;?TAKE 2 TABLETS BY MOUTH 1 TIME A DAY FOR 21 DAYS OF A
     Route: 048

REACTIONS (2)
  - Infection [None]
  - Therapy interrupted [None]
